FAERS Safety Report 18312462 (Version 1)
Quarter: 2020Q3

REPORT INFORMATION
  Report Type: Other
  Country: GB (occurrence: GB)
  Receive Date: 20200925
  Receipt Date: 20200925
  Transmission Date: 20201103
  Serious: Yes (Other)
  Sender: FDA-Public Use
  Company Number: GB-STRIDES ARCOLAB LIMITED-2020SP008752

PATIENT
  Age: 33 Year
  Sex: Female

DRUGS (2)
  1. GABAPENTIN. [Suspect]
     Active Substance: GABAPENTIN
     Indication: ANALGESIC THERAPY
     Dosage: UNK
     Route: 065
  2. BENEPALI [Suspect]
     Active Substance: ETANERCEPT
     Indication: PSORIATIC ARTHROPATHY
     Dosage: 50 MILLIGRAM, ONCE A WEEK, SOLUTION FOR INJECTION
     Route: 058

REACTIONS (14)
  - Depression [Unknown]
  - Tooth disorder [Unknown]
  - Peripheral swelling [Unknown]
  - Contusion [Unknown]
  - Therapeutic response shortened [Unknown]
  - Lower respiratory tract infection [Unknown]
  - Psoriatic arthropathy [Unknown]
  - Appetite disorder [Unknown]
  - Suspected COVID-19 [Unknown]
  - Fatigue [Unknown]
  - Productive cough [Unknown]
  - Tonsillitis [Unknown]
  - Dyspnoea [Unknown]
  - Stress [Unknown]
